FAERS Safety Report 9173574 (Version 1)
Quarter: 2013Q1

REPORT INFORMATION
  Report Type: Spontaneous
  Country: US (occurrence: US)
  Receive Date: 20130320
  Receipt Date: 20130320
  Transmission Date: 20140127
  Serious: No
  Sender: FDA-Public Use
  Company Number: US-BAYER-2013-030627

PATIENT
  Sex: Male
  Weight: 195 kg

DRUGS (7)
  1. BETASERON [Suspect]
     Dosage: 0.25 MG, QOD
     Route: 058
  2. XANAX [Concomitant]
  3. AMBIEN [Concomitant]
  4. NEURONTIN [Concomitant]
  5. OMEPRAZOLE [Concomitant]
  6. BACLOFEN [Concomitant]
  7. PROZAC [Concomitant]

REACTIONS (1)
  - Influenza like illness [Unknown]
